FAERS Safety Report 6468346-3 (Version None)
Quarter: 2009Q4

REPORT INFORMATION
  Report Type: 
  Country: None (occurrence: None)
  Receive Date: 20091203
  Receipt Date: 20081124
  Transmission Date: 20100525
  Serious: No
  Sender: FDA-Public Use
  Company Number: US-AMGEN-KDL320550

PATIENT
  Sex: Female

DRUGS (13)
  1. ENBREL [Suspect]
     Indication: RHEUMATOID ARTHRITIS
     Route: 058
     Dates: start: 20080715
  2. METHOTREXATE [Concomitant]
  3. AVAPRO [Concomitant]
  4. COUMADIN [Concomitant]
  5. VERAPAMIL [Concomitant]
  6. FOLIC ACID [Concomitant]
  7. SYNTHROID [Concomitant]
  8. FOSAMAX [Concomitant]
  9. PREDNISONE [Concomitant]
  10. FUROSEMIDE [Concomitant]
  11. TYLOX [Concomitant]
  12. CALCIUM [Concomitant]
  13. ALLEGRA [Concomitant]

REACTIONS (1)
  - ULCER [None]
